FAERS Safety Report 23531300 (Version 1)
Quarter: 2024Q1

REPORT INFORMATION
  Report Type: Spontaneous
  Country: US (occurrence: US)
  Receive Date: 20240216
  Receipt Date: 20240216
  Transmission Date: 20240410
  Serious: Yes (Other)
  Sender: FDA-Public Use
  Company Number: US-PHARMAAND GMBH-2023PHR00168

PATIENT
  Sex: Female
  Weight: 55.3 kg

DRUGS (1)
  1. RUBRACA [Suspect]
     Active Substance: RUCAPARIB CAMSYLATE
     Indication: Ovarian cancer
     Dosage: (1) 300 MG TAB TWICE DAILY
     Dates: start: 20220821

REACTIONS (1)
  - Malignant neoplasm progression [Not Recovered/Not Resolved]
